FAERS Safety Report 8597230-4 (Version None)
Quarter: 2012Q3

REPORT INFORMATION
  Report Type: 
  Country: None (occurrence: None)
  Receive Date: 20120816
  Receipt Date: 20120810
  Transmission Date: 20120928
  Serious: No
  Sender: FDA-Public Use
  Company Number: US-BIOGENIDEC-2012BI012660

PATIENT
  Age: 55 Year
  Sex: Female

DRUGS (6)
  1. VENLAFAXINE [Concomitant]
     Indication: DEPRESSION
     Dates: start: 20110101, end: 20110101
  2. INTERFERON BETA-1A [Suspect]
     Route: 030
     Dates: start: 20030101, end: 20030101
  3. EFFEXOR [Concomitant]
     Indication: DEPRESSION
     Dates: start: 19970101, end: 20110101
  4. INTERFERON BETA-1A [Suspect]
     Indication: MULTIPLE SCLEROSIS
     Route: 030
     Dates: start: 20021115, end: 20030101
  5. EFFEXOR [Concomitant]
     Dates: start: 20110101
  6. INTERFERON BETA-1A [Suspect]
     Route: 030
     Dates: start: 20030101

REACTIONS (9)
  - ROAD TRAFFIC ACCIDENT [None]
  - ADVERSE REACTION [None]
  - PYREXIA [None]
  - TREMOR [None]
  - ANXIETY [None]
  - INTERVERTEBRAL DISC PROTRUSION [None]
  - HEART RATE INCREASED [None]
  - PAIN [None]
  - INFLUENZA LIKE ILLNESS [None]
